FAERS Safety Report 7003631-8 (Version None)
Quarter: 2010Q3

REPORT INFORMATION
  Report Type: 
  Country: None (occurrence: None)
  Receive Date: 20100920
  Receipt Date: 20090520
  Transmission Date: 20110219
  Serious: No
  Sender: FDA-Public Use
  Company Number: US-WYE-H09427909

PATIENT
  Sex: Male
  Weight: 86.26 kg

DRUGS (5)
  1. PROTONIX [Suspect]
     Indication: GASTROOESOPHAGEAL REFLUX DISEASE
     Route: 048
     Dates: start: 20081101
  2. CLINDAMYCIN [Interacting]
     Indication: STAPHYLOCOCCAL INFECTION
     Dosage: UNKNOWN DOSE, IV THEN ORAL
     Dates: start: 20090507, end: 20090517
  3. CLINDAMYCIN [Interacting]
     Indication: NOSOCOMIAL INFECTION
  4. RIFAMPICIN [Interacting]
     Indication: STAPHYLOCOCCAL INFECTION
     Dosage: UNKNOWN DOSE, IV THEN ORAL
     Dates: start: 20090507, end: 20090517
  5. RIFAMPICIN [Interacting]
     Indication: NOSOCOMIAL INFECTION

REACTIONS (3)
  - DRUG DOSE OMISSION [None]
  - DRUG INEFFECTIVE [None]
  - DRUG INTERACTION [None]
